FAERS Safety Report 7129373-6 (Version None)
Quarter: 2010Q4

REPORT INFORMATION
  Report Type: 
  Country: None (occurrence: None)
  Receive Date: 20101130
  Receipt Date: 20101110
  Transmission Date: 20110411
  Serious: No
  Sender: FDA-Public Use
  Company Number: US-PFIZER INC-2010142522

PATIENT
  Sex: Female
  Weight: 67.1 kg

DRUGS (3)
  1. PREMPRO [Suspect]
     Indication: HOT FLUSH
     Dosage: 0.3/1.5 MG
     Route: 048
     Dates: start: 20100901, end: 20100923
  2. PREMPRO [Suspect]
     Indication: MENOPAUSE
  3. SERTRALINE [Concomitant]
     Indication: DEPRESSION
     Dosage: 100 MG, 1X/DAY

REACTIONS (2)
  - ABDOMINAL DISTENSION [None]
  - METRORRHAGIA [None]
